FAERS Safety Report 17198104 (Version 1)
Quarter: 2019Q4

REPORT INFORMATION
  Report Type: Spontaneous
  Country: US (occurrence: US)
  Receive Date: 20191225
  Receipt Date: 20191225
  Transmission Date: 20200122
  Serious: No
  Sender: FDA-Public Use
  Company Number: US-ASTRAZENECA-2019SF71107

PATIENT
  Sex: Female
  Weight: 68 kg

DRUGS (4)
  1. MUSINEX [Concomitant]
     Indication: SPEECH DISORDER
     Route: 065
     Dates: start: 20191107
  2. PROAIR HFA [Concomitant]
     Active Substance: ALBUTEROL SULFATE
     Indication: INHALATION THERAPY
     Dosage: AS REQUIRED
     Route: 055
  3. PULMICORT FLEXHALER [Suspect]
     Active Substance: BUDESONIDE
     Indication: ASTHMA
     Route: 055
  4. MUSINEX [Concomitant]
     Indication: COUGH
     Route: 065
     Dates: start: 20191107

REACTIONS (3)
  - Drug ineffective [Unknown]
  - Speech disorder [Recovering/Resolving]
  - Device issue [Unknown]
